FAERS Safety Report 13949092 (Version 7)
Quarter: 2017Q3

REPORT INFORMATION
  Report Type: Spontaneous
  Country: ES (occurrence: ES)
  Receive Date: 20170908
  Receipt Date: 20170927
  Transmission Date: 20171128
  Serious: Yes (Hospitalization, Other)
  Sender: FDA-Public Use
  Company Number: ES-PFIZER INC-2017386481

PATIENT
  Age: 76 Year
  Sex: Male
  Weight: 83 kg

DRUGS (4)
  1. ELIQUIS [Interacting]
     Active Substance: APIXABAN
     Indication: CEREBROVASCULAR ACCIDENT PROPHYLAXIS
     Dosage: 5 MG, 2X/DAY
     Route: 048
     Dates: start: 201507, end: 20160602
  2. TRANGOREX [Suspect]
     Active Substance: AMIODARONE HYDROCHLORIDE
     Indication: ATRIAL FIBRILLATION
     Dosage: 200 MG, EVERY 24 HOURS EXCEPT SATURDAY AND SUNDAY
     Route: 048
     Dates: start: 201603
  3. COPALIA [Concomitant]
     Active Substance: AMLODIPINE BESYLATE\VALSARTAN
     Dosage: 160 MG, QD
     Route: 065
  4. FERROGRADUMET [Concomitant]
     Dosage: UNK
     Route: 065

REACTIONS (5)
  - Haematemesis [Recovered/Resolved]
  - Haemorrhagic anaemia [Recovering/Resolving]
  - Upper gastrointestinal haemorrhage [Recovered/Resolved]
  - Drug interaction [Unknown]
  - Syncope [Unknown]

NARRATIVE: CASE EVENT DATE: 20160602
